FAERS Safety Report 7971559-2 (Version None)
Quarter: 2011Q4

REPORT INFORMATION
  Report Type: 
  Country: None (occurrence: None)
  Receive Date: 20111212
  Receipt Date: 20111207
  Transmission Date: 20120403
  Serious: Yes (Death)
  Sender: FDA-Public Use
  Company Number: GB-TEVA-312772ISR

PATIENT
  Age: 73 Year
  Sex: Female
  Weight: 41.27 kg

DRUGS (3)
  1. MIDAZOLAM [Concomitant]
  2. CITALOPRAM [Suspect]
  3. OLANZAPINE [Concomitant]

REACTIONS (2)
  - HALLUCINATION [None]
  - CARDIAC ARREST [None]
